FAERS Safety Report 8001202-8 (Version None)
Quarter: 2011Q4

REPORT INFORMATION
  Report Type: 
  Country: None (occurrence: None)
  Receive Date: 20111222
  Receipt Date: 20111220
  Transmission Date: 20120403
  Serious: Yes (Other)
  Sender: FDA-Public Use
  Company Number: US-PFIZER INC-2011310041

PATIENT
  Sex: Female
  Weight: 55.782 kg

DRUGS (4)
  1. ALDACTONE [Concomitant]
     Indication: ACNE
     Dosage: UNK, DAILY
  2. TOPAMAX [Concomitant]
     Indication: MIGRAINE
     Dosage: TWO TABLETS OF UNKNOWN DOSE, DAILY
     Route: 048
  3. IBUPROFEN (ADVIL) [Suspect]
     Indication: MUSCLE SPASMS
     Dosage: UNK, AS NEEDED
     Route: 048
     Dates: end: 20111217
  4. PREMPRO [Concomitant]
     Indication: HOT FLUSH
     Dosage: UNK,EVERY OTHER DAY

REACTIONS (3)
  - MALAISE [None]
  - SYNCOPE [None]
  - BLOOD PRESSURE DECREASED [None]
